FAERS Safety Report 21682501 (Version 1)
Quarter: 2022Q4

REPORT INFORMATION
  Report Type: Spontaneous
  Country: AU (occurrence: AU)
  Receive Date: 20221205
  Receipt Date: 20221205
  Transmission Date: 20230113
  Serious: Yes (Hospitalization)
  Sender: FDA-Public Use
  Company Number: AU-TASMAN PHARMA, INC.-2022TSM00575

PATIENT
  Sex: Female
  Weight: 47.6 kg

DRUGS (1)
  1. CLOZAPINE [Suspect]
     Active Substance: CLOZAPINE
     Indication: Schizophrenia
     Dosage: 50 MG MANE (MORNING), 250 MG NOCTE (NIGHT)
     Route: 048
     Dates: start: 20221012

REACTIONS (3)
  - Hospitalisation [Not Recovered/Not Resolved]
  - Salivary hypersecretion [Unknown]
  - Cognitive disorder [Unknown]

NARRATIVE: CASE EVENT DATE: 20221019
